FAERS Safety Report 10785305 (Version 1)
Quarter: 2015Q1

REPORT INFORMATION
  Report Type: Spontaneous
  Country: CN (occurrence: CN)
  Receive Date: 20150211
  Receipt Date: 20150211
  Transmission Date: 20150721
  Serious: Yes (Death, Other)
  Sender: FDA-Public Use
  Company Number: PHHY2015CN015156

PATIENT
  Age: 28 Year
  Sex: Male
  Weight: 72 kg

DRUGS (1)
  1. SUCCINYLCHOLINE CHLORIDE. [Suspect]
     Active Substance: SUCCINYLCHOLINE CHLORIDE
     Indication: PRODUCT USED FOR UNKNOWN INDICATION
     Dosage: 0.5 ML, UNK
     Route: 065

REACTIONS (15)
  - Conjunctival hyperaemia [Unknown]
  - Pericardial haemorrhage [Unknown]
  - Toxicity to various agents [Fatal]
  - Asphyxia [Unknown]
  - Pulmonary oedema [Unknown]
  - Loss of consciousness [Unknown]
  - Conjunctival haemorrhage [Unknown]
  - Petechiae [Unknown]
  - Muscle haemorrhage [Unknown]
  - Drug level increased [Unknown]
  - Brain oedema [Unknown]
  - Haemorrhage subcutaneous [Unknown]
  - Pulmonary congestion [Unknown]
  - Pulmonary haemorrhage [Unknown]
  - Cyanosis [Unknown]
